FAERS Safety Report 8188257-5 (Version None)
Quarter: 2012Q1

REPORT INFORMATION
  Report Type: 
  Country: None (occurrence: None)
  Receive Date: 20120306
  Receipt Date: 20120301
  Transmission Date: 20120608
  Serious: Yes (Hospitalization, Other)
  Sender: FDA-Public Use
  Company Number: BR-PFIZER INC-2012009096

PATIENT
  Age: 52 Year
  Sex: Male
  Weight: 65 kg

DRUGS (1)
  1. SUTENT [Suspect]
     Indication: RENAL CANCER METASTATIC
     Dosage: 50 MG, 1X/DAY, (CYCLE: 4/2)
     Route: 048
     Dates: start: 20111227

REACTIONS (14)
  - DRY SKIN [None]
  - SKIN DISCOLOURATION [None]
  - CONSTIPATION [None]
  - FATIGUE [None]
  - CONVULSION [None]
  - LACRIMATION INCREASED [None]
  - VOMITING [None]
  - HEADACHE [None]
  - DYSPHONIA [None]
  - BACK PAIN [None]
  - PHOTOSENSITIVITY REACTION [None]
  - NAUSEA [None]
  - PLATELET COUNT DECREASED [None]
  - DYSPEPSIA [None]
